FAERS Safety Report 10525786 (Version 1)
Quarter: 2014Q4

REPORT INFORMATION
  Report Type: Spontaneous
  Country: DE (occurrence: DE)
  Receive Date: 20141017
  Receipt Date: 20141017
  Transmission Date: 20150528
  Serious: Yes (Congenital Anomaly, Other)
  Sender: FDA-Public Use
  Company Number: DE-PFIZER INC-2014281490

PATIENT
  Sex: Male
  Weight: 3.79 kg

DRUGS (10)
  1. PAROXETINE [Suspect]
     Active Substance: PAROXETINE\PAROXETINE HYDROCHLORIDE
     Indication: ANXIETY DISORDER
     Dosage: 20 MG, 1X/DAY
     Route: 064
     Dates: start: 20130604, end: 20131118
  2. TREVILOR RETARD [Suspect]
     Active Substance: VENLAFAXINE HYDROCHLORIDE
     Indication: ANXIETY DISORDER
     Dosage: 450 MG, 1X/DAY
     Route: 064
     Dates: start: 20140124, end: 20140315
  3. RISPERDAL [Concomitant]
     Active Substance: RISPERIDONE
     Indication: ANXIETY DISORDER
     Dosage: 2 MG, 1X/DAY
     Route: 064
     Dates: start: 20131031, end: 20140123
  4. DIAZEPAM. [Concomitant]
     Active Substance: DIAZEPAM
     Indication: ANXIETY DISORDER
     Dosage: 10 MG, DAILY
     Route: 064
     Dates: start: 20131122, end: 20131224
  5. CITALOPRAM [Concomitant]
     Active Substance: CITALOPRAM HYDROBROMIDE
     Dosage: 30 MG, DAILY
     Route: 064
  6. AMITRIPTYLIN [Concomitant]
     Active Substance: AMITRIPTYLINE
     Indication: ANXIETY DISORDER
     Dosage: UNK
     Route: 064
     Dates: start: 20131119, end: 20131220
  7. SEROQUEL [Concomitant]
     Active Substance: QUETIAPINE FUMARATE
     Indication: ANXIETY DISORDER
     Dosage: 75 MG, 1X/DAY
     Route: 064
     Dates: start: 20131220, end: 20131224
  8. FOLIO [Concomitant]
     Active Substance: FOLIC ACID
     Indication: PROPHYLAXIS OF NEURAL TUBE DEFECT
     Dosage: 0.4 MG, DAILY
     Route: 064
     Dates: start: 20130703, end: 20140315
  9. CITALOPRAM [Concomitant]
     Active Substance: CITALOPRAM HYDROBROMIDE
     Indication: ANXIETY DISORDER
     Dosage: 20 MG, DAILY
     Route: 064
  10. ZYPREXA [Suspect]
     Active Substance: OLANZAPINE
     Indication: ANXIETY DISORDER
     Dosage: 10 MG, 1X/DAY
     Route: 064
     Dates: start: 20140124, end: 20140315

REACTIONS (6)
  - Oxygen saturation abnormal [Recovered/Resolved]
  - Drug withdrawal syndrome neonatal [Recovered/Resolved]
  - Foetal exposure during pregnancy [Unknown]
  - Haemangioma congenital [Unknown]
  - Agitation neonatal [Recovered/Resolved]
  - Restlessness [Recovered/Resolved]
